FAERS Safety Report 6882440-4 (Version None)
Quarter: 2010Q3

REPORT INFORMATION
  Report Type: 
  Country: None (occurrence: None)
  Receive Date: 20100727
  Receipt Date: 20100714
  Transmission Date: 20110219
  Serious: Yes (Hospitalization, Other)
  Sender: FDA-Public Use
  Company Number: JP-PFIZER INC-2010087410

PATIENT
  Age: 80 Year
  Sex: Male

DRUGS (1)
  1. VORICONAZOLE [Suspect]
     Route: 048

REACTIONS (1)
  - CARDIAC FAILURE [None]
